FAERS Safety Report 17344749 (Version 2)
Quarter: 2020Q1

REPORT INFORMATION
  Report Type: Report from Study
  Country: US (occurrence: US)
  Receive Date: 20200129
  Receipt Date: 20200205
  Transmission Date: 20200409
  Serious: Yes (Hospitalization, Other)
  Sender: FDA-Public Use
  Company Number: US-SHIRE-US201939800

PATIENT
  Age: 68 Year
  Sex: Female

DRUGS (2)
  1. TEDUGLUTIDE [Suspect]
     Active Substance: TEDUGLUTIDE
     Dosage: 0.07 MILLIGRAM, 1X/DAY:QD
     Route: 065
  2. TEDUGLUTIDE [Suspect]
     Active Substance: TEDUGLUTIDE
     Indication: SHORT-BOWEL SYNDROME
     Dosage: 0.14 MILLILITER, 1X/DAY:QD
     Route: 058
     Dates: start: 20191116

REACTIONS (7)
  - Influenza [Recovered/Resolved]
  - Deep vein thrombosis [Unknown]
  - Injection site reaction [Unknown]
  - Product dose omission [Unknown]
  - Peripheral artery thrombosis [Unknown]
  - Peripheral swelling [Unknown]
  - Stoma complication [Unknown]

NARRATIVE: CASE EVENT DATE: 20200116
